FAERS Safety Report 9007411 (Version 1)
Quarter: 2013Q1

REPORT INFORMATION
  Report Type: Report from Study
  Country: US (occurrence: US)
  Receive Date: 20130110
  Receipt Date: 20130110
  Transmission Date: 20140127
  Serious: Yes (Hospitalization, Other)
  Sender: FDA-Public Use
  Company Number: US-ABBOTT-13P-163-1031635-00

PATIENT
  Age: 44 Year
  Sex: Female
  Weight: 49.03 kg

DRUGS (1)
  1. HUMIRA PEN [Suspect]
     Indication: CROHN^S DISEASE
     Route: 058
     Dates: start: 201210

REACTIONS (3)
  - Muscular weakness [Recovered/Resolved]
  - Crohn^s disease [Recovered/Resolved]
  - Gastrointestinal inflammation [Unknown]
